FAERS Safety Report 14012017 (Version 1)
Quarter: 2017Q3

REPORT INFORMATION
  Report Type: Spontaneous
  Country: US (occurrence: US)
  Receive Date: 20170926
  Receipt Date: 20170926
  Transmission Date: 20171128
  Serious: Yes (Other)
  Sender: FDA-Public Use
  Company Number: None

PATIENT
  Age: 61 Year
  Sex: Male
  Weight: 112.5 kg

DRUGS (9)
  1. OTC ANTACIDS (TUMS) [Concomitant]
  2. VITAMIN D3 [Concomitant]
     Active Substance: CHOLECALCIFEROL
  3. VITAMIN B12 [Concomitant]
     Active Substance: CYANOCOBALAMIN
  4. METOPROLOL. [Concomitant]
     Active Substance: METOPROLOL
  5. BRALINTIN [Concomitant]
  6. MAGNESIUM [Concomitant]
     Active Substance: MAGNESIUM
  7. PREDNISONE. [Concomitant]
     Active Substance: PREDNISONE
  8. PRAVASTATIN SODIUM. [Suspect]
     Active Substance: PRAVASTATIN SODIUM
     Indication: HIGH DENSITY LIPOPROTEIN INCREASED
  9. INSULIN [Concomitant]
     Active Substance: INSULIN NOS

REACTIONS (11)
  - Insomnia [None]
  - Abdominal pain upper [None]
  - Oropharyngeal pain [None]
  - Wrong drug administered [None]
  - Pollakiuria [None]
  - Appetite disorder [None]
  - Drug dispensing error [None]
  - Dry mouth [None]
  - Pruritus [None]
  - Myalgia [None]
  - Product label on wrong product [None]

NARRATIVE: CASE EVENT DATE: 20170923
